FAERS Safety Report 23055535 (Version 2)
Quarter: 2023Q4

REPORT INFORMATION
  Report Type: Spontaneous
  Country: US (occurrence: None)
  Receive Date: 20231011
  Receipt Date: 20231129
  Transmission Date: 20240109
  Serious: No
  Sender: FDA-Public Use
  Company Number: 2023A222902

PATIENT
  Age: 864 Month

DRUGS (1)
  1. BYDUREON BCISE [Suspect]
     Active Substance: EXENATIDE
     Route: 058
     Dates: start: 20230908

REACTIONS (5)
  - Erythema [Unknown]
  - Nervousness [Unknown]
  - Wrong technique in device usage process [Unknown]
  - Product dose omission in error [Unknown]
  - Device leakage [Unknown]

NARRATIVE: CASE EVENT DATE: 20230901
